FAERS Safety Report 22130449 (Version 1)
Quarter: 2023Q1

REPORT INFORMATION
  Report Type: Spontaneous
  Country: FR (occurrence: FR)
  Receive Date: 20230323
  Receipt Date: 20230323
  Transmission Date: 20230417
  Serious: Yes (Hospitalization)
  Sender: FDA-Public Use
  Company Number: None

PATIENT
  Age: 63 Year
  Sex: Female
  Weight: 59.6 kg

DRUGS (20)
  1. VINCRISTINE SULFATE [Suspect]
     Active Substance: VINCRISTINE SULFATE
     Indication: Non-Hodgkin^s lymphoma
     Dosage: C4
     Dates: start: 20220708, end: 20220708
  2. DOXORUBICIN HYDROCHLORIDE [Suspect]
     Active Substance: DOXORUBICIN HYDROCHLORIDE
     Indication: Non-Hodgkin^s lymphoma
     Dosage: C4
     Dates: start: 20220708, end: 20220708
  3. RITUXIMAB [Suspect]
     Active Substance: RITUXIMAB
     Indication: Non-Hodgkin^s lymphoma
     Dosage: C4
     Dates: start: 20220708, end: 20220708
  4. METHOTREXATE SODIUM [Suspect]
     Active Substance: METHOTREXATE SODIUM
     Indication: Non-Hodgkin^s lymphoma
     Dosage: C4
     Dates: start: 20220708, end: 20220708
  5. CYCLOPHOSPHAMIDE [Suspect]
     Active Substance: CYCLOPHOSPHAMIDE
     Indication: Non-Hodgkin^s lymphoma
     Dosage: C4
     Dates: start: 20220708, end: 20220708
  6. BACTRIM [Suspect]
     Active Substance: SULFAMETHOXAZOLE\TRIMETHOPRIM
     Dosage: CEVERY MONDAY - WEDNESDAY - FRIDAY
     Route: 048
  7. POLYETHYLENE GLYCOL 3350 [Concomitant]
     Active Substance: POLYETHYLENE GLYCOL 3350
     Dosage: IF NEEDED
     Route: 048
  8. PRIMPERAN [Concomitant]
     Active Substance: METOCLOPRAMIDE HYDROCHLORIDE
     Indication: Nausea
     Dosage: 10 MG, 1X/DAY, IF NAUSEA
     Route: 048
  9. LETROZOLE [Concomitant]
     Active Substance: LETROZOLE
     Dosage: 2.5 MG (1-0-0)
  10. ARANESP [Concomitant]
     Active Substance: DARBEPOETIN ALFA
     Dosage: 1 DF, WEEKLY, EVERY MONDAY
  11. CALCIUM ALGINATE [Concomitant]
     Active Substance: CALCIUM ALGINATE
     Dosage: 3 DF, 1X/DAY
  12. VALACYCLOVIR HYDROCHLORIDE [Concomitant]
     Active Substance: VALACYCLOVIR HYDROCHLORIDE
     Dosage: 1000 MG, 1X/DAY (1-0-1)
  13. ACETAMINOPHEN [Concomitant]
     Active Substance: ACETAMINOPHEN
     Dosage: 1 G, IF NEEDED
  14. MYFORTIC [Concomitant]
     Active Substance: MYCOPHENOLATE SODIUM
     Dosage: 3 DF, DAILY (2-0-1)
  15. FUNGIZONE [Concomitant]
     Active Substance: AMPHOTERICIN B
     Dosage: 3 DF, 1X/DAY
     Route: 048
  16. CARRAGEENAN\LIDOCAINE\TITANIUM\ZINC [Concomitant]
     Active Substance: CARRAGEENAN\LIDOCAINE\TITANIUM\ZINC
     Dosage: 2 DF, DAILY (1-0-1)
     Route: 061
  17. PANTOPRAZOLE [Concomitant]
     Active Substance: PANTOPRAZOLE
     Dosage: 80 MG, DAILY(1-0-1)
     Route: 048
  18. REFRESH CELLUVISC [Concomitant]
     Active Substance: CARBOXYMETHYLCELLULOSE SODIUM
     Dosage: 3 DF, DAILY
     Route: 047
  19. DELORAZEPAM [Concomitant]
     Active Substance: DELORAZEPAM
     Dosage: 1 MG, IF NEEDED
     Route: 048
  20. DOSTINEX [Concomitant]
     Active Substance: CABERGOLINE
     Dosage: 1 DF, WEEKLY, ON SATURDAY
     Route: 048

REACTIONS (3)
  - Clostridium difficile colitis [Recovered/Resolved]
  - Mucosal inflammation [Recovered/Resolved]
  - Febrile bone marrow aplasia [Recovered/Resolved]

NARRATIVE: CASE EVENT DATE: 20220709
